FAERS Safety Report 10856089 (Version 1)
Quarter: 2015Q1

REPORT INFORMATION
  Report Type: Spontaneous
  Country: US (occurrence: US)
  Receive Date: 20150223
  Receipt Date: 20150223
  Transmission Date: 20150721
  Serious: Yes (Hospitalization, Other)
  Sender: FDA-Public Use
  Company Number: US-WATSON-2015-03144

PATIENT
  Age: 65 Year
  Sex: Male

DRUGS (2)
  1. ANDROGEL [Suspect]
     Active Substance: TESTOSTERONE
     Indication: BLOOD TESTOSTERONE DECREASED
     Route: 065
  2. ANDRODERM [Suspect]
     Active Substance: TESTOSTERONE
     Indication: BLOOD TESTOSTERONE DECREASED
     Dosage: UNK, DAILY
     Route: 065

REACTIONS (7)
  - Cerebrovascular accident [Unknown]
  - VIIth nerve paralysis [Unknown]
  - Hemiparesis [Unknown]
  - Cerebral infarction [Unknown]
  - Arterial occlusive disease [Unknown]
  - Transient ischaemic attack [Unknown]
  - Dyspnoea [Unknown]
